FAERS Safety Report 6174212-3 (Version None)
Quarter: 2009Q2

REPORT INFORMATION
  Report Type: 
  Country: None (occurrence: None)
  Receive Date: 20090430
  Receipt Date: 20080320
  Transmission Date: 20091009
  Serious: No
  Sender: FDA-Public Use
  Company Number: US-ASTRAZENECA-2008UW06035

PATIENT
  Age: 56 Year
  Sex: Male
  Weight: 109.1 kg

DRUGS (2)
  1. NEXIUM [Suspect]
     Indication: REFLUX OESOPHAGITIS
     Route: 048
  2. METOPROLOL TARTRATE [Suspect]
     Route: 048

REACTIONS (1)
  - VERTIGO [None]
